FAERS Safety Report 8974119 (Version 1)
Quarter: 2012Q4

REPORT INFORMATION
  Report Type: Spontaneous
  Country: US (occurrence: None)
  Receive Date: 20121217
  Receipt Date: 20121217
  Transmission Date: 20130627
  Serious: Yes (Hospitalization)
  Sender: FDA-Public Use
  Company Number: None

PATIENT
  Age: 61 Year
  Sex: Male
  Weight: 103.8 kg

DRUGS (1)
  1. LISINOPRIL [Suspect]
     Indication: HYPERTENSION
     Dosage: 1/2 TAB EVERY DAY PO
     Route: 048
     Dates: start: 20120924, end: 20121107

REACTIONS (6)
  - Dehydration [None]
  - Gait disturbance [None]
  - Hypotension [None]
  - Renal failure acute [None]
  - Antipsychotic drug level increased [None]
  - Mental status changes [None]
